FAERS Safety Report 12754079 (Version 1)
Quarter: 2016Q3

REPORT INFORMATION
  Report Type: Spontaneous
  Country: US (occurrence: US)
  Receive Date: 20160915
  Receipt Date: 20160915
  Transmission Date: 20161109
  Serious: No
  Sender: FDA-Public Use
  Company Number: US-ALLERGAN-1658509US

PATIENT
  Sex: Female

DRUGS (2)
  1. VIBERZI [Suspect]
     Active Substance: ELUXADOLINE
     Indication: IRRITABLE BOWEL SYNDROME
     Dosage: 100 MG, BID
  2. VIBERZI [Suspect]
     Active Substance: ELUXADOLINE
     Dosage: 100 MG, QD

REACTIONS (2)
  - Inappropriate schedule of drug administration [Unknown]
  - Constipation [Unknown]
